FAERS Safety Report 24746779 (Version 1)
Quarter: 2024Q4

REPORT INFORMATION
  Report Type: Spontaneous
  Country: CN (occurrence: CN)
  Receive Date: 20241218
  Receipt Date: 20241218
  Transmission Date: 20250115
  Serious: Yes (Hospitalization, Other)
  Sender: BAXTER
  Company Number: None

PATIENT
  Age: 32 Year
  Sex: Female
  Weight: 30 kg

DRUGS (8)
  1. CYCLOPHOSPHAMIDE [Suspect]
     Active Substance: CYCLOPHOSPHAMIDE
     Indication: Non-Hodgkin^s lymphoma
     Dosage: 0.6 G, ONE TIME IN ONE DAY, D1, AS A PART OF RCHO REGIMEN
     Route: 041
     Dates: start: 20241016, end: 20241016
  2. CYCLOPHOSPHAMIDE [Suspect]
     Active Substance: CYCLOPHOSPHAMIDE
     Indication: Chemotherapy
  3. RITUXIMAB [Suspect]
     Active Substance: RITUXIMAB
     Indication: Non-Hodgkin^s lymphoma
     Dosage: 450 MG, ONE TIME IN ONE DAY, D0, AS A PART OF RCHO REGIMEN
     Route: 041
     Dates: start: 20241015, end: 20241015
  4. RITUXIMAB [Suspect]
     Active Substance: RITUXIMAB
     Indication: Chemotherapy
  5. DOXORUBICIN HYDROCHLORIDE [Suspect]
     Active Substance: DOXORUBICIN HYDROCHLORIDE
     Indication: Non-Hodgkin^s lymphoma
     Dosage: 30 MG, D1, AS A PART OF RCHO REGIMEN
     Route: 042
     Dates: start: 20241016, end: 20241016
  6. DOXORUBICIN HYDROCHLORIDE [Suspect]
     Active Substance: DOXORUBICIN HYDROCHLORIDE
     Indication: Chemotherapy
  7. VINCRISTINE SULFATE [Suspect]
     Active Substance: VINCRISTINE SULFATE
     Indication: Non-Hodgkin^s lymphoma
     Dosage: 1.5 MG, D1, AS A PART OF RCHO REGIMEN
     Route: 042
     Dates: start: 20241016, end: 20241016
  8. VINCRISTINE SULFATE [Suspect]
     Active Substance: VINCRISTINE SULFATE
     Indication: Chemotherapy

REACTIONS (7)
  - Syncope [Unknown]
  - Condition aggravated [Unknown]
  - Non-Hodgkin^s lymphoma [Unknown]
  - Myelosuppression [Recovering/Resolving]
  - Pyrexia [Recovered/Resolved]
  - Temperature intolerance [Unknown]
  - Night sweats [Unknown]

NARRATIVE: CASE EVENT DATE: 20241127
